FAERS Safety Report 19041640 (Version 1)
Quarter: 2021Q1

REPORT INFORMATION
  Report Type: Spontaneous
  Country: US (occurrence: US)
  Receive Date: 20210322
  Receipt Date: 20210322
  Transmission Date: 20210420
  Serious: Yes (Hospitalization, Other)
  Sender: FDA-Public Use
  Company Number: US-PURDUE-USA-2021-0235209

PATIENT
  Age: 64 Year
  Sex: Female

DRUGS (1)
  1. NON?PMN HYDROMORPHONE HCL [Suspect]
     Active Substance: HYDROMORPHONE HYDROCHLORIDE
     Indication: PRODUCT USED FOR UNKNOWN INDICATION
     Dosage: 10 MG, SINGLE
     Route: 014

REACTIONS (8)
  - Coma [Recovered/Resolved]
  - Miosis [Recovered/Resolved]
  - Wrong product administered [Recovered/Resolved]
  - Altered state of consciousness [Recovered/Resolved]
  - Toxicity to various agents [Recovered/Resolved]
  - Hyporesponsive to stimuli [Recovered/Resolved]
  - Hypopnoea [Recovered/Resolved]
  - Somnolence [Recovered/Resolved]
